FAERS Safety Report 25483482 (Version 1)
Quarter: 2025Q2

REPORT INFORMATION
  Report Type: Spontaneous
  Country: US (occurrence: US)
  Receive Date: 20250626
  Receipt Date: 20250626
  Transmission Date: 20250716
  Serious: No
  Sender: LEGACY PHARMACEUTICAL PACKAGING
  Company Number: US-SEBELA IRELAND LIMITED-2024SEB00046

PATIENT
  Sex: Male

DRUGS (2)
  1. LOTRONEX [Suspect]
     Active Substance: ALOSETRON HYDROCHLORIDE
     Indication: Irritable bowel syndrome
     Route: 048
  2. LOTRONEX [Suspect]
     Active Substance: ALOSETRON HYDROCHLORIDE
     Indication: Diarrhoea

REACTIONS (1)
  - Off label use [Unknown]
